FAERS Safety Report 13548445 (Version 1)
Quarter: 2017Q2

REPORT INFORMATION
  Report Type: Spontaneous
  Country: US (occurrence: US)
  Receive Date: 20170516
  Receipt Date: 20170516
  Transmission Date: 20170830
  Serious: No
  Sender: FDA-Public Use
  Company Number: US-JNJFOC-20170323675

PATIENT
  Age: 29 Year
  Sex: Female
  Weight: 58.97 kg

DRUGS (18)
  1. ADDERALL [Concomitant]
     Active Substance: AMPHETAMINE ASPARTATE\AMPHETAMINE SULFATE\DEXTROAMPHETAMINE SACCHARATE\DEXTROAMPHETAMINE SULFATE
     Indication: ATTENTION DEFICIT/HYPERACTIVITY DISORDER
     Dosage: DOSAGE 30XR
     Route: 065
  2. INDOLE-3-CARBINOL [Concomitant]
     Active Substance: DIETARY SUPPLEMENT
     Indication: BLOOD OESTROGEN
     Route: 065
  3. FOLIC ACID. [Concomitant]
     Active Substance: FOLIC ACID
     Indication: HAIR DISORDER
     Route: 065
  4. IRON [Concomitant]
     Active Substance: IRON
     Indication: HAIR DISORDER
     Route: 065
  5. LEXAPRO [Concomitant]
     Active Substance: ESCITALOPRAM OXALATE
     Indication: DEPRESSION
     Route: 065
  6. VITAMIN E [Concomitant]
     Active Substance: .ALPHA.-TOCOPHEROL
     Indication: HAIR DISORDER
     Route: 065
  7. WOMENS ROGAINE UNSCENTED [Suspect]
     Active Substance: MINOXIDIL
     Indication: ALOPECIA
     Route: 061
     Dates: start: 20170207
  8. VITAMIN D [Concomitant]
     Active Substance: CHOLECALCIFEROL
     Indication: HAIR DISORDER
     Dosage: DOSAGE 1000 IU
     Route: 065
  9. VIVISCAL [Concomitant]
     Indication: HAIR DISORDER
     Route: 065
  10. KARIVA [Concomitant]
     Active Substance: DESOGESTREL\ETHINYL ESTRADIOL
     Indication: CONTRACEPTION
     Route: 065
  11. VITAMIN-A [Concomitant]
     Active Substance: VITAMIN A
     Indication: HAIR DISORDER
     Route: 065
  12. BIOTIN [Concomitant]
     Active Substance: BIOTIN
     Indication: HAIR DISORDER
     Route: 065
  13. VITAMIN B12 [Concomitant]
     Active Substance: CYANOCOBALAMIN
     Indication: HAIR DISORDER
     Route: 065
  14. OLUX-E [Concomitant]
     Active Substance: CLOBETASOL PROPIONATE
     Indication: SKIN ULCER
     Dosage: AS NECESSARY
     Route: 065
  15. WOMENS ROGAINE UNSCENTED [Suspect]
     Active Substance: MINOXIDIL
     Route: 061
  16. ZINC. [Concomitant]
     Active Substance: ZINC
     Indication: HAIR DISORDER
     Route: 065
  17. MEGARED OMEGA 3 KRILL OIL [Concomitant]
     Indication: HAIR DISORDER
     Route: 065
  18. KERATIN [Concomitant]
     Active Substance: KERATIN
     Indication: HAIR DISORDER
     Route: 065

REACTIONS (2)
  - Alopecia [Not Recovered/Not Resolved]
  - Contraindicated product administered [Not Recovered/Not Resolved]

NARRATIVE: CASE EVENT DATE: 20170207
